FAERS Safety Report 17299346 (Version 1)
Quarter: 2020Q1

REPORT INFORMATION
  Report Type: Spontaneous
  Country: US (occurrence: US)
  Receive Date: 20200121
  Receipt Date: 20200121
  Transmission Date: 20200409
  Serious: Yes (Death)
  Sender: FDA-Public Use
  Company Number: None

PATIENT
  Age: 34 Year
  Sex: Female
  Weight: 67.5 kg

DRUGS (10)
  1. METOCLOPRAMIDE 5 MG AC + HS [Concomitant]
     Dates: start: 20181108, end: 20181202
  2. PANTOPRAZOLE 40 MG QD [Concomitant]
     Dates: start: 20181110, end: 20181202
  3. MIDODRINE  5 MG BID [Concomitant]
     Dates: start: 20181202, end: 20181202
  4. DDAVP  0.1 MG [Concomitant]
     Dates: start: 20181112, end: 20181202
  5. HYDROCORTISONE  10 MG [Concomitant]
     Dates: start: 20181109, end: 20181202
  6. METOPROLOL 12.5 MG BID [Concomitant]
     Dates: start: 20181118, end: 20181202
  7. LEVOTHYROXINE   75 MCG [Concomitant]
     Dates: start: 20181127, end: 20181202
  8. BENZONATATE. [Suspect]
     Active Substance: BENZONATATE
     Indication: COUGH
     Route: 048
     Dates: start: 20181201, end: 20181202
  9. HYDROCORTISONE 15 MG [Concomitant]
     Dates: start: 20181109, end: 20181202
  10. K-DUR  20 MEQ  BID [Concomitant]
     Dates: start: 20181123, end: 20181202

REACTIONS (17)
  - Cardiac arrest [None]
  - Visual impairment [None]
  - Intracranial mass [None]
  - Procedural haemorrhage [None]
  - Constipation [None]
  - Fall [None]
  - Unresponsive to stimuli [None]
  - Pulse absent [None]
  - Dry skin [None]
  - Skin discolouration [None]
  - Heart rate increased [None]
  - Hypernatraemia [None]
  - Hypotension [None]
  - Cough [None]
  - Craniopharyngioma [None]
  - Blood thyroid stimulating hormone decreased [None]
  - Thyroxine decreased [None]

NARRATIVE: CASE EVENT DATE: 20180102
